FAERS Safety Report 6838220-9 (Version None)
Quarter: 2010Q3

REPORT INFORMATION
  Report Type: 
  Country: None (occurrence: None)
  Receive Date: 20100713
  Receipt Date: 20070605
  Transmission Date: 20110219
  Serious: No
  Sender: FDA-Public Use
  Company Number: US-PFIZER INC-2007047940

PATIENT
  Sex: Female
  Weight: 76.2 kg

DRUGS (10)
  1. CHANTIX [Suspect]
     Indication: SMOKING CESSATION THERAPY
     Dates: start: 20070515
  2. SYNTHROID [Concomitant]
  3. ACETYLSALICYLIC ACID [Concomitant]
  4. NIFEDIPINE [Concomitant]
     Indication: CARDIOVASCULAR DISORDER
  5. POTASSIUM [Concomitant]
  6. HYDROCHLOROTHIAZIDE [Concomitant]
  7. CYCLOBENZAPRINE [Concomitant]
     Indication: MUSCLE SPASMS
  8. MONTELUKAST SODIUM [Concomitant]
     Indication: ASTHMA
  9. AZMACORT [Concomitant]
  10. ALBUTEROL [Concomitant]

REACTIONS (3)
  - MYALGIA [None]
  - RASH [None]
  - RASH PRURITIC [None]
